FAERS Safety Report 10966440 (Version 1)
Quarter: 2015Q1

REPORT INFORMATION
  Report Type: Spontaneous
  Country: GB (occurrence: GB)
  Receive Date: 20150330
  Receipt Date: 20150330
  Transmission Date: 20150721
  Serious: Yes (Other)
  Sender: FDA-Public Use
  Company Number: GB-TEVA-549733ACC

PATIENT
  Age: 60 Year
  Sex: Female

DRUGS (21)
  1. BISOPROLOL [Concomitant]
     Active Substance: BISOPROLOL
  2. SPIRONOLACTONE. [Concomitant]
     Active Substance: SPIRONOLACTONE
  3. ALFACALCIDOL [Concomitant]
     Active Substance: ALFACALCIDOL
  4. DIAZEPAM. [Concomitant]
     Active Substance: DIAZEPAM
  5. FOLIC ACID. [Concomitant]
     Active Substance: FOLIC ACID
  6. DOCUSATE [Concomitant]
     Active Substance: DOCUSATE
  7. OMEPRAZOLE. [Concomitant]
     Active Substance: OMEPRAZOLE
  8. ASPIRIN. [Concomitant]
     Active Substance: ASPIRIN
  9. ATORVASTATIN [Concomitant]
     Active Substance: ATORVASTATIN
  10. FUROSEMIDE. [Concomitant]
     Active Substance: FUROSEMIDE
  11. SEVREDOL [Concomitant]
     Active Substance: MORPHINE
  12. MIRTAZAPINE. [Suspect]
     Active Substance: MIRTAZAPINE
     Route: 048
  13. DANTROLENE [Suspect]
     Active Substance: DANTROLENE
     Route: 048
  14. MST CONTINUS [Concomitant]
     Active Substance: MORPHINE SULFATE
  15. CYCLIZINE [Concomitant]
     Active Substance: CYCLIZINE
  16. PARACETAMOL [Concomitant]
     Active Substance: ACETAMINOPHEN
  17. SALBUTAMOL [Concomitant]
     Active Substance: ALBUTEROL
     Route: 055
  18. TIOTROPIUM [Concomitant]
     Active Substance: TIOTROPIUM
     Route: 055
  19. ZOPICLONE [Concomitant]
     Active Substance: ZOPICLONE
  20. LACTULOSE. [Concomitant]
     Active Substance: LACTULOSE
  21. SENNA [Concomitant]
     Active Substance: SENNA LEAF\SENNOSIDES\SENNOSIDES A AND B

REACTIONS (1)
  - Hepatotoxicity [Unknown]
